FAERS Safety Report 20456853 (Version 4)
Quarter: 2022Q3

REPORT INFORMATION
  Report Type: Spontaneous
  Country: JP (occurrence: JP)
  Receive Date: 20220210
  Receipt Date: 20220802
  Transmission Date: 20221026
  Serious: Yes (Life-Threatening, Hospitalization, Other)
  Sender: FDA-Public Use
  Company Number: JP-ASTELLAS-2022JP002167

PATIENT
  Weight: 3.29 kg

DRUGS (22)
  1. ZOLPIDEM TARTRATE [Suspect]
     Active Substance: ZOLPIDEM TARTRATE
     Indication: Maternal exposure during pregnancy
     Dosage: 5 MG, QD
     Route: 064
     Dates: start: 20210118, end: 20210124
  2. ZOLPIDEM TARTRATE [Suspect]
     Active Substance: ZOLPIDEM TARTRATE
     Dosage: 10 MG, QD
     Route: 064
     Dates: start: 20210125, end: 20210420
  3. AMITRIPTYLINE HYDROCHLORIDE [Suspect]
     Active Substance: AMITRIPTYLINE HYDROCHLORIDE
     Indication: Maternal exposure during pregnancy
     Dosage: 2 MG, QD,ORAL SOLUTION
     Route: 064
  4. AMITRIPTYLINE HYDROCHLORIDE [Suspect]
     Active Substance: AMITRIPTYLINE HYDROCHLORIDE
     Dosage: 10 MG
     Route: 064
     Dates: start: 20210108, end: 20210124
  5. AMITRIPTYLINE HYDROCHLORIDE [Suspect]
     Active Substance: AMITRIPTYLINE HYDROCHLORIDE
     Dosage: 20 UNK
     Route: 064
     Dates: start: 20210125, end: 20210420
  6. SERTRALINE [Suspect]
     Active Substance: SERTRALINE HYDROCHLORIDE
     Indication: Maternal exposure during pregnancy
     Dosage: 10 MG, QD
     Route: 064
  7. SERTRALINE [Suspect]
     Active Substance: SERTRALINE HYDROCHLORIDE
     Dosage: 25 MG, QD
     Route: 064
     Dates: start: 20210118, end: 20210131
  8. SERTRALINE [Suspect]
     Active Substance: SERTRALINE HYDROCHLORIDE
     Dosage: 50 MG, QD
     Route: 064
     Dates: start: 20210201, end: 20210207
  9. SERTRALINE [Suspect]
     Active Substance: SERTRALINE HYDROCHLORIDE
     Dosage: 100 MG, QD
     Route: 064
     Dates: start: 20210208, end: 20210420
  10. BROMAZEPAM [Suspect]
     Active Substance: BROMAZEPAM
     Indication: Maternal exposure during pregnancy
     Dosage: 4 MG, QD
     Route: 064
  11. BROMAZEPAM [Suspect]
     Active Substance: BROMAZEPAM
     Dosage: 2 MG
     Route: 064
     Dates: start: 20210201, end: 20210420
  12. FLUNITRAZEPAM [Suspect]
     Active Substance: FLUNITRAZEPAM
     Indication: Maternal exposure during pregnancy
     Dosage: 1 MG, QD,
     Route: 064
     Dates: start: 20210201, end: 20210420
  13. QUETIAPINE FUMARATE [Suspect]
     Active Substance: QUETIAPINE FUMARATE
     Indication: Maternal exposure during pregnancy
     Dosage: 25 MG, QD
     Route: 064
     Dates: start: 20210208, end: 20210307
  14. QUETIAPINE FUMARATE [Suspect]
     Active Substance: QUETIAPINE FUMARATE
     Dosage: 10 MG, QD (FINE GRANULE)
     Route: 064
     Dates: start: 20210308, end: 20210420
  15. VALPROATE SODIUM [Suspect]
     Active Substance: VALPROATE SODIUM
     Indication: Maternal exposure during pregnancy
     Dosage: 100 MG, QD
     Route: 064
     Dates: start: 20201211, end: 20220108
  16. LORAZEPAM [Suspect]
     Active Substance: LORAZEPAM
     Indication: Maternal exposure during pregnancy
     Dosage: 0.5 MG, Q12H
     Route: 064
     Dates: start: 20210125, end: 20210420
  17. ESZOPICLONE [Suspect]
     Active Substance: ESZOPICLONE
     Indication: Maternal exposure during pregnancy
     Dosage: 3 MG, QD
     Route: 064
     Dates: start: 20210208, end: 20210402
  18. POLARAMINE [Suspect]
     Active Substance: DEXCHLORPHENIRAMINE MALEATE
     Indication: Maternal exposure during pregnancy
     Dosage: 2 MG
     Route: 064
     Dates: start: 20210215, end: 20210420
  19. CLOTIAZEPAM [Suspect]
     Active Substance: CLOTIAZEPAM
     Indication: Maternal exposure during pregnancy
     Dosage: 5 MG, QD
     Route: 064
     Dates: start: 20201225, end: 20210131
  20. CLOTIAZEPAM [Suspect]
     Active Substance: CLOTIAZEPAM
     Dosage: 5 MG, QD
     Route: 064
     Dates: start: 20210201, end: 20210420
  21. FURSULTIAMINE\RIBOFLAVIN [Suspect]
     Active Substance: FURSULTIAMINE\RIBOFLAVIN
     Indication: Maternal exposure during pregnancy
     Dosage: 50 MG
     Route: 064
     Dates: start: 20210125, end: 20210420
  22. FERROUS SULFATE [Suspect]
     Active Substance: FERROUS SULFATE
     Indication: Maternal exposure during pregnancy
     Dosage: 105 MG, QD
     Route: 064
     Dates: start: 20210405, end: 20210420

REACTIONS (5)
  - Drug withdrawal syndrome neonatal [Recovered/Resolved]
  - Neonatal respiratory distress syndrome [Recovered/Resolved]
  - Foetal exposure during pregnancy [Recovered/Resolved]
  - Somnolence [Recovered/Resolved]
  - Apnoea [Recovered/Resolved]

NARRATIVE: CASE EVENT DATE: 20210420
